FAERS Safety Report 23848708 (Version 1)
Quarter: 2024Q2

REPORT INFORMATION
  Report Type: Spontaneous
  Country: US (occurrence: None)
  Receive Date: 20240510
  Receipt Date: 20240510
  Transmission Date: 20240715
  Serious: Yes (Other)
  Sender: FDA-Public Use
  Company Number: None

PATIENT
  Age: 7 Year
  Sex: Male
  Weight: 19.6 kg

DRUGS (1)
  1. GENOTROPIN [Suspect]
     Active Substance: SOMATROPIN
     Indication: Small for dates baby
     Dosage: 1.2 MG 6 DAYS PER WEEK SUBCUTANEOUS?
     Route: 058
     Dates: start: 20221130

REACTIONS (3)
  - Abnormal behaviour [None]
  - Aggression [None]
  - Defiant behaviour [None]

NARRATIVE: CASE EVENT DATE: 20240510
